FAERS Safety Report 5096641-1 (Version None)
Quarter: 2006Q3

REPORT INFORMATION
  Report Type: 
  Country: None (occurrence: None)
  Receive Date: 20060831
  Receipt Date: 20060817
  Transmission Date: 20061208
  Serious: Yes (Hospitalization)
  Sender: FDA-Public Use
  Company Number: ABPAS-06-0419

PATIENT
  Age: 47 Year
  Sex: Female

DRUGS (3)
  1. ABRAXANE [Suspect]
     Indication: BREAST CANCER METASTATIC
     Dosage: 155MG X 1 DOSE (EVERY 3 WEEKS) INTRAVENUOS DRIP
     Route: 041
     Dates: start: 20060713, end: 20060713
  2. AVASTIN [Concomitant]
  3. CARBOPLATIN [Concomitant]

REACTIONS (2)
  - DEHYDRATION [None]
  - NEUTROPENIA [None]
